FAERS Safety Report 13941953 (Version 1)
Quarter: 2017Q3

REPORT INFORMATION
  Report Type: Spontaneous
  Country: FR (occurrence: FR)
  Receive Date: 20170906
  Receipt Date: 20170906
  Transmission Date: 20171127
  Serious: Yes (Death)
  Sender: FDA-Public Use
  Company Number: FR-SA-2017SA160203

PATIENT
  Age: 67 Year
  Sex: Female

DRUGS (4)
  1. SOTALOL HYDROCHLORIDE. [Interacting]
     Active Substance: SOTALOL HYDROCHLORIDE
     Route: 065
  2. INDAPAMIDE. [Suspect]
     Active Substance: INDAPAMIDE
     Route: 065
  3. ESCITALOPRAM OXALATE. [Interacting]
     Active Substance: ESCITALOPRAM OXALATE
     Route: 065
  4. BENZOIC ACID [Interacting]
     Active Substance: BENZOIC ACID
     Route: 065

REACTIONS (2)
  - Drug interaction [Fatal]
  - Electrocardiogram QT prolonged [Fatal]
